FAERS Safety Report 22161681 (Version 2)
Quarter: 2023Q2

REPORT INFORMATION
  Report Type: Spontaneous
  Country: IT (occurrence: IT)
  Receive Date: 20230331
  Receipt Date: 20230516
  Transmission Date: 20230721
  Serious: Yes (Other)
  Sender: FDA-Public Use
  Company Number: IT-009507513-2303ITA010314

PATIENT
  Sex: Male

DRUGS (2)
  1. ZERBAXA [Suspect]
     Active Substance: CEFTOLOZANE SULFATE\TAZOBACTAM SODIUM
     Indication: Osteomyelitis bacterial
     Dosage: 1.5 GRAM, THREE TIMES A DAY (TID)
  2. ZERBAXA [Suspect]
     Active Substance: CEFTOLOZANE SULFATE\TAZOBACTAM SODIUM
     Dosage: 1.5 GRAM, THREE TIMES A DAY (TID)

REACTIONS (4)
  - Deep vein thrombosis postoperative [Unknown]
  - Ill-defined disorder [Unknown]
  - Off label use [Unknown]
  - Incorrect product administration duration [Unknown]
